FAERS Safety Report 11797216 (Version 3)
Quarter: 2016Q3

REPORT INFORMATION
  Report Type: Report from Study
  Country: US (occurrence: US)
  Receive Date: 20151203
  Receipt Date: 20160923
  Transmission Date: 20161109
  Serious: Yes (Other)
  Sender: FDA-Public Use
  Company Number: US-UCBSA-2015038372

PATIENT
  Age: 28 Year
  Sex: Female
  Weight: 47 kg

DRUGS (16)
  1. UNISOM SLEEPTABS [Concomitant]
     Active Substance: DOXYLAMINE SUCCINATE
     Indication: NAUSEA
     Dosage: 5 DF, ONCE DAILY (QD)
     Route: 048
     Dates: start: 20150520, end: 20150722
  2. PROGESTERONE. [Concomitant]
     Active Substance: PROGESTERONE
     Indication: PREMATURE LABOUR
     Dosage: 1 DF, ONCE DAILY (QD)
     Route: 048
     Dates: start: 20150923, end: 20151101
  3. MAGNESIUM SULFATE. [Concomitant]
     Active Substance: MAGNESIUM SULFATE
     Dosage: 1 DAY
     Route: 042
     Dates: start: 20151007, end: 20151014
  4. CERTOLIZUMAB PEGOL RA [Suspect]
     Active Substance: CERTOLIZUMAB PEGOL
     Indication: RHEUMATOID ARTHRITIS
  5. MAGNESIUM [Concomitant]
     Active Substance: MAGNESIUM
     Indication: PRODUCT USED FOR UNKNOWN INDICATION
     Dosage: 1 DF, ONCE DAILY (QD)
     Route: 048
     Dates: start: 20150916, end: 20151101
  6. MAGNESIUM SULFATE. [Concomitant]
     Active Substance: MAGNESIUM SULFATE
     Indication: PREMATURE LABOUR
     Dosage: UNK
     Route: 042
     Dates: start: 20150923, end: 20150930
  7. FLUVACCIN [Concomitant]
     Active Substance: INFLUENZA VIRUS VACCINE
     Indication: PRODUCT USED FOR UNKNOWN INDICATION
     Dosage: 1 SHOT
     Dates: start: 20151007, end: 20151007
  8. VITAMIN B6 [Concomitant]
     Active Substance: PYRIDOXINE HYDROCHLORIDE
     Indication: NAUSEA
     Dosage: 5 DF, ONCE DAILY (QD)
     Route: 048
     Dates: start: 20150520, end: 20150722
  9. MAGNESIUM SULFATE. [Concomitant]
     Active Substance: MAGNESIUM SULFATE
     Dosage: 1 DAY
     Route: 042
     Dates: start: 20151028, end: 20151101
  10. CERTOLIZUMAB PEGOL RA [Suspect]
     Active Substance: CERTOLIZUMAB PEGOL
     Indication: ANKYLOSING SPONDYLITIS
     Dosage: 1 SHOT EVERY 2 WEEKS
     Dates: start: 20150904, end: 20151006
  11. VITAFOL [Concomitant]
     Indication: PRODUCT USED FOR UNKNOWN INDICATION
     Dosage: 1 DF, ONCE DAILY (QD)
     Route: 048
     Dates: start: 20150709, end: 20151101
  12. PRENATAL VITAMINS [Concomitant]
     Active Substance: VITAMINS
     Indication: PRODUCT USED FOR UNKNOWN INDICATION
     Dosage: 4 DF, ONCE DAILY (QD)
     Route: 048
     Dates: start: 20150408, end: 20150708
  13. PROCARDIA [Concomitant]
     Active Substance: NIFEDIPINE
     Indication: PREMATURE LABOUR
     Dosage: 5 DF, ONCE DAILY (QD)
     Route: 048
     Dates: start: 20150923, end: 20151101
  14. METRONIDAZOLE. [Concomitant]
     Active Substance: METRONIDAZOLE
     Indication: INFECTION
     Dosage: 2 DF, ONCE DAILY (QD)
     Route: 048
     Dates: start: 20150819, end: 20150828
  15. BETAMETHA [Concomitant]
     Indication: PREMATURE LABOUR
     Dosage: 1 SHOT TOTAL
     Dates: start: 20151007, end: 20151014
  16. BETAMETHA [Concomitant]
     Dosage: 1 SHOT 3 TOTAL
     Dates: start: 20150923, end: 20150930

REACTIONS (7)
  - Premature labour [Unknown]
  - Breast feeding [Unknown]
  - Back pain [Unknown]
  - Exposure during pregnancy [Unknown]
  - Premature delivery [Unknown]
  - Drug ineffective [Unknown]
  - Premature separation of placenta [Recovered/Resolved]

NARRATIVE: CASE EVENT DATE: 2015
